FAERS Safety Report 20565942 (Version 1)
Quarter: 2022Q1

REPORT INFORMATION
  Report Type: Spontaneous
  Country: US (occurrence: US)
  Receive Date: 20220308
  Receipt Date: 20220308
  Transmission Date: 20220423
  Serious: No
  Sender: FDA-Public Use
  Company Number: US-GW PHARMA-202203USGW01085

PATIENT
  Sex: Male

DRUGS (1)
  1. EPIDIOLEX [Suspect]
     Active Substance: CANNABIDIOL
     Indication: Lennox-Gastaut syndrome
     Dosage: 1250 MILLIGRAM, QD (400MG MORNING AND 850 MG AT BEDTIME) (DOSE INCREASED DRASTICALLY SINCE JUL 2021)
     Route: 048
     Dates: start: 20200124

REACTIONS (6)
  - Gastrointestinal disorder [Unknown]
  - Hepatic enzyme increased [Unknown]
  - Vomiting [Unknown]
  - Infection [Unknown]
  - Lethargy [Unknown]
  - Fatigue [Unknown]
